FAERS Safety Report 7793455-6 (Version None)
Quarter: 2011Q4

REPORT INFORMATION
  Report Type: 
  Country: None (occurrence: None)
  Receive Date: 20111003
  Receipt Date: 20110928
  Transmission Date: 20120403
  Serious: Yes (Life-Threatening, Hospitalization)
  Sender: FDA-Public Use
  Company Number: PHHY2011CH86215

PATIENT
  Age: 67 Year
  Sex: Male

DRUGS (11)
  1. CLEMASTINE FUMARATE [Concomitant]
  2. FENTANYL [Concomitant]
     Dates: start: 20110517, end: 20110517
  3. ROCURONIUM BROMIDE [Concomitant]
     Dates: start: 20110517, end: 20110517
  4. METHADONE HCL [Concomitant]
     Dates: start: 20110517, end: 20110517
  5. CEFUROXIME SANDOZ [Suspect]
     Indication: PROPHYLACTIC CHEMOTHERAPY
     Dosage: 1.5 MG, ONCE/SINGLE
     Route: 042
     Dates: start: 20110517, end: 20110517
  6. SOLU-MEDROL [Concomitant]
  7. DOSPIR [Concomitant]
  8. ULTIVA [Concomitant]
     Dates: start: 20110517, end: 20110517
  9. ZANTAC [Concomitant]
  10. CLORAZEPATE DIPOTASSIUM [Concomitant]
     Dates: start: 20110517, end: 20110517
  11. PROPOFOL [Concomitant]
     Dates: start: 20110517, end: 20110517

REACTIONS (6)
  - RENAL FAILURE ACUTE [None]
  - ATELECTASIS [None]
  - ANAPHYLACTIC REACTION [None]
  - BRONCHOSPASM [None]
  - HYPOTENSION [None]
  - LACTIC ACIDOSIS [None]
